FAERS Safety Report 23389119 (Version 2)
Quarter: 2024Q1

REPORT INFORMATION
  Report Type: Spontaneous
  Country: IN (occurrence: IN)
  Receive Date: 20240110
  Receipt Date: 20240312
  Transmission Date: 20240409
  Serious: Yes (Death, Other)
  Sender: FDA-Public Use
  Company Number: IN-PFIZER INC-PV202300187927

PATIENT
  Age: 52 Year
  Sex: Male
  Weight: 69.6 kg

DRUGS (11)
  1. LORLATINIB [Suspect]
     Active Substance: LORLATINIB
     Dosage: UNK
     Dates: start: 20231028
  2. LORLATINIB [Suspect]
     Active Substance: LORLATINIB
     Dosage: 100 MG, 1X/DAY
     Route: 048
     Dates: start: 202310
  3. LORLATINIB [Suspect]
     Active Substance: LORLATINIB
     Dosage: 75 MG
  4. LORLATINIB [Suspect]
     Active Substance: LORLATINIB
     Dosage: 100 MG, 1X/DAY
     Route: 048
     Dates: start: 20231118
  5. LORLATINIB [Suspect]
     Active Substance: LORLATINIB
     Dosage: 100 MG
     Route: 048
     Dates: end: 202402
  6. TRANEXAMIC ACID [Concomitant]
     Active Substance: TRANEXAMIC ACID
  7. ULTRACET [Concomitant]
     Active Substance: ACETAMINOPHEN\TRAMADOL HYDROCHLORIDE
  8. GABAPENTIN [Concomitant]
     Active Substance: GABAPENTIN
     Dosage: 300 MG, HS
  9. DUPHALAC [Concomitant]
     Active Substance: LACTULOSE
     Dosage: 30 ML, HS
  10. LEVERA [LEVETIRACETAM] [Concomitant]
     Dosage: 500 MG, 2X/DAY
  11. HUCAINE [Concomitant]

REACTIONS (8)
  - Death [Fatal]
  - Hallucination, visual [Unknown]
  - Heart rate increased [Unknown]
  - Chest pain [Unknown]
  - Throat irritation [Unknown]
  - Back pain [Unknown]
  - Aggression [Unknown]
  - Cognitive disorder [Unknown]
